FAERS Safety Report 8830904 (Version 1)
Quarter: 2012Q4

REPORT INFORMATION
  Report Type: 
  Country: CA (occurrence: CA)
  Receive Date: 20121009
  Receipt Date: 20121009
  Transmission Date: 20130627
  Serious: Yes (Hospitalization)
  Sender: FDA-Public Use
  Company Number: CA-AMGEN-CANSP2012061768

PATIENT
  Age: 81 Year
  Sex: Female
  Weight: 66.82 kg

DRUGS (1)
  1. PROLIA [Suspect]
     Indication: OSTEOPOROSIS
     Dosage: 60 mg, UNK
     Dates: start: 20120920

REACTIONS (7)
  - Hot flush [Unknown]
  - Dyspnoea [Unknown]
  - Hypertension [Unknown]
  - Nausea [Recovered/Resolved]
  - Fatigue [Recovered/Resolved]
  - Acne [Unknown]
  - Oedema peripheral [Unknown]
